FAERS Safety Report 7722491-0 (Version None)
Quarter: 2011Q3

REPORT INFORMATION
  Report Type: 
  Country: None (occurrence: None)
  Receive Date: 20110831
  Receipt Date: 20110825
  Transmission Date: 20111222
  Serious: Yes (Hospitalization)
  Sender: FDA-Public Use
  Company Number: CA-PFIZER INC-2011166717

PATIENT
  Age: 59 Year
  Sex: Male
  Weight: 84.5 kg

DRUGS (5)
  1. EPLERENONE [Suspect]
     Dosage: 25 MG, 1X/DAY
     Route: 048
     Dates: start: 20101026
  2. CARVEDILOL [Concomitant]
     Dosage: 3.125 MG IN THE MORNING AND 6.25MG IN THE EVENING
     Route: 048
     Dates: start: 20080124
  3. PERINDOPRIL [Concomitant]
     Dosage: 4 MG, 1X/DAY AT BEDTIME
     Route: 048
     Dates: start: 20080124
  4. FUROSEMIDE [Concomitant]
     Dosage: 40 MG, 1X/DAY
     Route: 048
     Dates: start: 20071222
  5. ASPIRIN [Concomitant]
     Dosage: 80 MG, 1X/DAY
     Route: 048
     Dates: start: 20071222

REACTIONS (3)
  - CARDIAC FAILURE [None]
  - ATRIAL FIBRILLATION [None]
  - CONDITION AGGRAVATED [None]
